FAERS Safety Report 10239215 (Version 1)
Quarter: 2014Q2

REPORT INFORMATION
  Report Type: Report from Study
  Country: CO (occurrence: CO)
  Receive Date: 20140616
  Receipt Date: 20140616
  Transmission Date: 20141212
  Serious: Yes (Other)
  Sender: FDA-Public Use
  Company Number: CO-US-EMD SERONO, INC.-7298121

PATIENT
  Age: 11 Year
  Sex: Female
  Weight: 27 kg

DRUGS (1)
  1. SAIZEN [Suspect]
     Indication: GROWTH HORMONE DEFICIENCY
     Dosage: 1.30 (UNITS UNSPECIFIED)
     Route: 058

REACTIONS (4)
  - Amoebiasis [Unknown]
  - Weight decreased [Unknown]
  - Hormone level abnormal [Recovering/Resolving]
  - Tonsillitis [Unknown]
